FAERS Safety Report 6139553-4 (Version None)
Quarter: 2009Q2

REPORT INFORMATION
  Report Type: 
  Country: None (occurrence: None)
  Receive Date: 20090401
  Receipt Date: 20090324
  Transmission Date: 20091009
  Serious: Yes (Hospitalization, Other)
  Sender: FDA-Public Use
  Company Number: US-ASTRAZENECA-2009UW07417

PATIENT
  Age: 67 Year
  Sex: Female

DRUGS (6)
  1. PULMICORT-100 [Suspect]
     Indication: ASTHMA
     Route: 055
     Dates: start: 20080101, end: 20081212
  2. BROVANA [Suspect]
     Indication: ASTHMA
     Dosage: 15 UG / 2 ML
     Route: 055
     Dates: start: 20080101, end: 20081212
  3. LIPITOR [Concomitant]
  4. ACIPHEX [Concomitant]
  5. ZOLOFT [Concomitant]
  6. VITAMINS [Concomitant]

REACTIONS (4)
  - CONVULSION [None]
  - DIZZINESS [None]
  - LOSS OF CONSCIOUSNESS [None]
  - TONGUE BITING [None]
